FAERS Safety Report 10766621 (Version 2)
Quarter: 2015Q1

REPORT INFORMATION
  Report Type: Spontaneous
  Country: BR (occurrence: BR)
  Receive Date: 20150205
  Receipt Date: 20150215
  Transmission Date: 20150721
  Serious: Yes (Other)
  Sender: FDA-Public Use
  Company Number: PHHY2015BR009523

PATIENT
  Sex: Male
  Weight: 58 kg

DRUGS (3)
  1. GILENYA [Suspect]
     Active Substance: FINGOLIMOD HYDROCHLORIDE
     Indication: MULTIPLE SCLEROSIS
     Dosage: 0.5 MG, QD (APPROXIMATELY FOR 6 DAYS)
     Route: 048
  2. TEGRETOL [Suspect]
     Active Substance: CARBAMAZEPINE
     Indication: PRODUCT USED FOR UNKNOWN INDICATION
     Route: 065
  3. MOTILIUM [Concomitant]
     Active Substance: DOMPERIDONE
     Indication: HIATUS HERNIA
     Dosage: 10 MG, BID
     Route: 065
     Dates: start: 2001

REACTIONS (20)
  - Muscular weakness [Recovered/Resolved]
  - Gait disturbance [Recovered/Resolved]
  - Vision blurred [Unknown]
  - Pain [Unknown]
  - Oral disorder [Recovering/Resolving]
  - Bone pain [Recovering/Resolving]
  - Malaise [Recovering/Resolving]
  - Abdominal pain upper [Recovering/Resolving]
  - Aphonia [Recovering/Resolving]
  - Balance disorder [Recovering/Resolving]
  - Nervous system disorder [Recovering/Resolving]
  - Headache [Recovering/Resolving]
  - Blindness [Not Recovered/Not Resolved]
  - Dizziness [Recovering/Resolving]
  - Immunosuppression [Recovering/Resolving]
  - Eye pain [Recovering/Resolving]
  - Hypoaesthesia [Recovering/Resolving]
  - Musculoskeletal stiffness [Recovering/Resolving]
  - Paralysis [Recovering/Resolving]
  - Discomfort [Not Recovered/Not Resolved]
